FAERS Safety Report 4872650-X (Version None)
Quarter: 2006Q1

REPORT INFORMATION
  Report Type: 
  Country: None (occurrence: None)
  Receive Date: 20060105
  Receipt Date: 20030618
  Transmission Date: 20060701
  Serious: Yes (Hospitalization)
  Sender: FDA-Public Use
  Company Number: AU-ABBOTT-03P-008-0222417-00

PATIENT
  Sex: Male

DRUGS (3)
  1. FENOFIBRATE [Suspect]
     Indication: DYSLIPIDAEMIA
     Route: 048
     Dates: start: 19990629
  2. MAGNESIUM [Concomitant]
     Indication: DRUG USE FOR UNKNOWN INDICATION
     Dates: start: 20010601
  3. METFORMIN [Concomitant]
     Indication: DRUG USE FOR UNKNOWN INDICATION
     Dates: start: 19950101

REACTIONS (1)
  - ATRIOVENTRICULAR BLOCK [None]
